FAERS Safety Report 4684879-4 (Version None)
Quarter: 2005Q2

REPORT INFORMATION
  Report Type: 
  Country: None (occurrence: None)
  Receive Date: 20050327
  Receipt Date: 20050406
  Transmission Date: 20051028
  Serious: No
  Sender: FDA-Public Use
  Company Number: PHEH2005US03628

PATIENT
  Age: 41 Year
  Sex: Female

DRUGS (1)
  1. ZELNORM [Suspect]
     Indication: CONSTIPATION
     Dosage: 1/2 OF 2 MG PER DAY, ORAL
     Route: 048
     Dates: start: 20050301

REACTIONS (2)
  - CHROMATURIA [None]
  - STREPTOCOCCAL INFECTION [None]
